FAERS Safety Report 8028363-9 (Version None)
Quarter: 2012Q1

REPORT INFORMATION
  Report Type: 
  Country: None (occurrence: None)
  Receive Date: 20120104
  Receipt Date: 20111228
  Transmission Date: 20120608
  Serious: Yes (Hospitalization)
  Sender: FDA-Public Use
  Company Number: 2012SP000059

PATIENT
  Age: 91 Year
  Sex: Female

DRUGS (7)
  1. ALMOTRIPTAN MALATE [Suspect]
     Indication: MIGRAINE
     Dosage: PRN; PO
     Route: 048
  2. IBUPROFEN [Concomitant]
  3. ACETAMINOPHEN [Concomitant]
  4. CHONDROSULF [Concomitant]
  5. LACTULOSE [Concomitant]
  6. ACETAMINOPHEN AND CODEINE PHOSPHATE [Concomitant]
  7. MIRTAZAPINE [Suspect]
     Dosage: PO
     Route: 048
     Dates: end: 20111110

REACTIONS (8)
  - DRUG INTERACTION [None]
  - CEREBRAL SMALL VESSEL ISCHAEMIC DISEASE [None]
  - ASTHENIA [None]
  - CEREBRAL ATROPHY [None]
  - CONFUSIONAL STATE [None]
  - CONSTIPATION [None]
  - HEADACHE [None]
  - CEREBRAL HAEMORRHAGE [None]
